FAERS Safety Report 10004330 (Version 1)
Quarter: 2014Q1

REPORT INFORMATION
  Report Type: Spontaneous
  Country: US (occurrence: US)
  Receive Date: 20140312
  Receipt Date: 20140312
  Transmission Date: 20141002
  Serious: No
  Sender: FDA-Public Use
  Company Number: US-009507513-2011SP044348

PATIENT
  Age: 10 Year
  Sex: Female

DRUGS (2)
  1. CLARITIN CHEWABLE TABLETS [Suspect]
     Dosage: 5 MG, ONCE
     Route: 048
  2. CLARITIN CHEWABLE TABLETS [Suspect]
     Dosage: 5 MG, ONCE
     Route: 048

REACTIONS (2)
  - Inappropriate schedule of drug administration [Unknown]
  - Off label use [Unknown]
